FAERS Safety Report 4362346-5 (Version None)
Quarter: 2004Q2

REPORT INFORMATION
  Report Type: 
  Country: None (occurrence: None)
  Receive Date: 20040521
  Receipt Date: 20040512
  Transmission Date: 20050107
  Serious: Yes (Hospitalization)
  Sender: FDA-Public Use
  Company Number: DK-BRISTOL-MYERS SQUIBB COMPANY-12584306

PATIENT
  Age: 47 Year
  Sex: Female
  Weight: 68 kg

DRUGS (4)
  1. CARBOPLATIN [Suspect]
     Indication: OVARIAN CANCER
     Dosage: 1ST DOSE- 11FEB04
     Dates: start: 20040324, end: 20040324
  2. PACLITAXEL [Suspect]
     Indication: OVARIAN CANCER
     Dosage: 1ST DOSE- 11FEB04
     Dates: start: 20040324, end: 20040324
  3. ZOFRAN [Concomitant]
     Indication: NAUSEA
     Route: 048
     Dates: start: 20040330, end: 20040402
  4. DURAGESIC [Concomitant]
     Indication: PAIN
     Route: 062

REACTIONS (6)
  - BACK PAIN [None]
  - CONSTIPATION [None]
  - NAUSEA [None]
  - PAIN [None]
  - PERFORMANCE STATUS DECREASED [None]
  - VOMITING [None]
